FAERS Safety Report 25604243 (Version 2)
Quarter: 2025Q3

REPORT INFORMATION
  Report Type: Spontaneous
  Country: EU (occurrence: EU)
  Receive Date: 20250725
  Receipt Date: 20250807
  Transmission Date: 20251020
  Serious: Yes (Other)
  Sender: CELLTRION
  Company Number: EU-ROCHE-10000250128

PATIENT

DRUGS (2)
  1. BEVACIZUMAB [Suspect]
     Active Substance: BEVACIZUMAB
     Indication: Product used for unknown indication
     Dosage: NINTH CYCLE ON 20/FEB/2025
     Route: 065
     Dates: start: 20240903
  2. ATEZOLIZUMAB [Suspect]
     Active Substance: ATEZOLIZUMAB
     Indication: Product used for unknown indication
     Dosage: NINTH CYCLE ON 20/FEB/2025
     Route: 065
     Dates: start: 20240903

REACTIONS (1)
  - Myocardial ischaemia [Unknown]
